FAERS Safety Report 7231650-5 (Version None)
Quarter: 2011Q1

REPORT INFORMATION
  Report Type: 
  Country: None (occurrence: None)
  Receive Date: 20110118
  Receipt Date: 20110113
  Transmission Date: 20110831
  Serious: Yes (Death, Hospitalization, Other)
  Sender: FDA-Public Use
  Company Number: CO-PFIZER INC-2011009689

PATIENT
  Age: 63 Year
  Sex: Female

DRUGS (4)
  1. MEDROL [Suspect]
     Dosage: 4 MG, 1X/DAY
     Route: 048
     Dates: start: 20030101
  2. DICLOFENAC [Concomitant]
  3. NAPROXEN [Concomitant]
  4. MEDROL [Suspect]
     Indication: RHEUMATOID ARTHRITIS
     Dosage: 4 MG, 2X/DAY
     Route: 048

REACTIONS (6)
  - LYMPHOMA [None]
  - ANAEMIA [None]
  - RHEUMATOID ARTHRITIS [None]
  - RENAL FAILURE [None]
  - CEREBRAL ISCHAEMIA [None]
  - PULMONARY OEDEMA [None]
